FAERS Safety Report 6929979-0 (Version None)
Quarter: 2010Q3

REPORT INFORMATION
  Report Type: 
  Country: None (occurrence: None)
  Receive Date: 20100813
  Receipt Date: 20100617
  Transmission Date: 20110219
  Serious: Yes (Hospitalization)
  Sender: FDA-Public Use
  Company Number: 2010EU002635

PATIENT
  Age: 27 Year
  Sex: Female
  Weight: 95 kg

DRUGS (15)
  1. FK463 (MICAFUNGIN) INJECTION [Suspect]
     Indication: ANTIFUNGAL PROPHYLAXIS
     Dosage: 100 MG, UID/QD, IV NOS
     Route: 042
     Dates: start: 20100422, end: 20100506
  2. MYCOPHENOLATE MOFETIL [Concomitant]
  3. GANCICLOVIR (GANCICLOVIR SODIUM) [Concomitant]
  4. LEVETIRACETAM [Concomitant]
  5. MEROPENEM [Concomitant]
  6. PANTOPRAZOL (PANTOPRAZOLE SODIUM) [Concomitant]
  7. TACROLIMUS [Concomitant]
  8. METHYLPREDNISOLONE 4MG TAB [Concomitant]
  9. VANCOMYCIN [Concomitant]
  10. PROMAGNOR (MAGNESIUM, MAGNESIUM CARBONATE, MAGNESIUM CITRATE, MAGNESIU [Concomitant]
  11. COLECALCIFEROL [Concomitant]
  12. DIMETINDEINE [Concomitant]
  13. ENOXAPARIN SODIUM [Concomitant]
  14. CALCIUM GLUBIONATE [Concomitant]
  15. LEVOFLOXACIN [Concomitant]

REACTIONS (5)
  - ABDOMINAL ABSCESS [None]
  - HEPATIC STEATOSIS [None]
  - HYPOCALCAEMIA [None]
  - HYPOMAGNESAEMIA [None]
  - URINARY TRACT INFECTION [None]
